FAERS Safety Report 6088803-1 (Version None)
Quarter: 2009Q1

REPORT INFORMATION
  Report Type: 
  Country: None (occurrence: None)
  Receive Date: 20090224
  Receipt Date: 20090212
  Transmission Date: 20090719
  Serious: Yes (Hospitalization)
  Sender: FDA-Public Use
  Company Number: ES-BAXTER-2009BH002427

PATIENT
  Age: 69 Year
  Sex: Male

DRUGS (6)
  1. TISSUCOL/TISSEEL DUO STIM4 [Suspect]
     Indication: ANAL FISTULA
     Route: 026
     Dates: start: 20081016, end: 20081016
  2. GABAPENTIN [Concomitant]
     Route: 048
  3. SEROPRAM [Concomitant]
     Indication: DEPRESSION
     Route: 048
  4. SUMIAL [Concomitant]
     Route: 048
  5. PRIMIDONE [Concomitant]
     Route: 048
  6. DEPRAX [Concomitant]
     Route: 048

REACTIONS (1)
  - ANAL ABSCESS [None]
